FAERS Safety Report 7407008-2 (Version None)
Quarter: 2011Q2

REPORT INFORMATION
  Report Type: 
  Country: None (occurrence: None)
  Receive Date: 20110411
  Receipt Date: 20110405
  Transmission Date: 20111010
  Serious: No
  Sender: FDA-Public Use
  Company Number: US-PFIZER INC-2011076202

PATIENT
  Sex: Female

DRUGS (1)
  1. ACCUPRIL [Suspect]
     Dosage: UNK

REACTIONS (1)
  - COUGH [None]
